FAERS Safety Report 13754933 (Version 2)
Quarter: 2017Q3

REPORT INFORMATION
  Report Type: Spontaneous
  Country: US (occurrence: US)
  Receive Date: 20170714
  Receipt Date: 20170804
  Transmission Date: 20171127
  Serious: No
  Sender: FDA-Public Use
  Company Number: US-BEH-2017082035

PATIENT
  Age: 66 Year
  Sex: Female
  Weight: 90.7 kg

DRUGS (1)
  1. HIZENTRA [Suspect]
     Active Substance: HUMAN IMMUNOGLOBULIN G
     Indication: IMMUNODEFICIENCY COMMON VARIABLE
     Dosage: 10 G/50 ML, QW
     Route: 058
     Dates: start: 20140811

REACTIONS (2)
  - Platelet count decreased [Recovering/Resolving]
  - Administration site bruise [Recovering/Resolving]

NARRATIVE: CASE EVENT DATE: 20170710
